FAERS Safety Report 19051190 (Version 1)
Quarter: 2021Q1

REPORT INFORMATION
  Report Type: Report from Study
  Country: JP (occurrence: JP)
  Receive Date: 20210324
  Receipt Date: 20210324
  Transmission Date: 20210420
  Serious: Yes (Other)
  Sender: FDA-Public Use
  Company Number: JP-AUROBINDO-AUR-APL-2021-012496

PATIENT
  Age: 44 Year
  Sex: Male
  Weight: 58.9 kg

DRUGS (3)
  1. FOLOTYN [Suspect]
     Active Substance: PRALATREXATE
     Indication: PERIPHERAL T-CELL LYMPHOMA UNSPECIFIED STAGE IV
     Dosage: 30 MILLIGRAM/SQ. METER, DAILY
     Route: 042
     Dates: start: 20200811, end: 20200811
  2. FOLIC ACID. [Concomitant]
     Active Substance: FOLIC ACID
     Indication: PRODUCT USED FOR UNKNOWN INDICATION
     Dosage: UNK
     Route: 065
     Dates: start: 20200813, end: 20200905
  3. VITAMIN B12 [Concomitant]
     Active Substance: CYANOCOBALAMIN
     Indication: PRODUCT USED FOR UNKNOWN INDICATION
     Dosage: UNK
     Route: 065
     Dates: start: 20200808, end: 20200808

REACTIONS (2)
  - Interstitial lung disease [Not Recovered/Not Resolved]
  - Therapeutic response decreased [Unknown]

NARRATIVE: CASE EVENT DATE: 20200813
